FAERS Safety Report 6910338-1 (Version None)
Quarter: 2010Q3

REPORT INFORMATION
  Report Type: 
  Country: None (occurrence: None)
  Receive Date: 20100806
  Receipt Date: 20100726
  Transmission Date: 20110219
  Serious: Yes (Other)
  Sender: FDA-Public Use
  Company Number: DE-PFIZER INC-2010062872

PATIENT
  Age: 54 Year
  Sex: Male
  Weight: 95 kg

DRUGS (7)
  1. LYRICA [Suspect]
     Indication: PARAESTHESIA
     Dosage: 75 MG, 1X/DAY
     Route: 048
     Dates: start: 20100331, end: 20100101
  2. LYRICA [Suspect]
     Dosage: 150 MG DAILY
     Route: 048
     Dates: start: 20100101
  3. IBUPROFEN [Concomitant]
     Dosage: UNK
  4. MESALAZINE [Concomitant]
     Dosage: 500 MG, 2X/DAY
  5. LEVOTHYROXINE SODIUM [Concomitant]
     Dosage: 100 MG, 1X/DAY
  6. URALYT-U [Concomitant]
     Dosage: DOSE UNKNOWN, ONCE DAILY
  7. CYMBALTA [Concomitant]
     Dosage: 30 MG DAILY
     Dates: start: 20100310, end: 20100528

REACTIONS (19)
  - BLOOD PRESSURE FLUCTUATION [None]
  - COORDINATION ABNORMAL [None]
  - DIARRHOEA [None]
  - DIPLOPIA [None]
  - DISTURBANCE IN ATTENTION [None]
  - DRY EYE [None]
  - ERECTILE DYSFUNCTION [None]
  - ERYTHEMA [None]
  - FATIGUE [None]
  - IRRITABILITY [None]
  - JOINT SWELLING [None]
  - LIBIDO DISORDER [None]
  - OEDEMA [None]
  - PARAESTHESIA [None]
  - SOMNOLENCE [None]
  - SPUTUM RETENTION [None]
  - TACHYARRHYTHMIA [None]
  - VISUAL ACUITY REDUCED [None]
  - WEIGHT INCREASED [None]
